FAERS Safety Report 9798710 (Version 1)
Quarter: 2014Q1

REPORT INFORMATION
  Report Type: Spontaneous
  Country: US (occurrence: US)
  Receive Date: 20140106
  Receipt Date: 20140106
  Transmission Date: 20141002
  Serious: No
  Sender: FDA-Public Use
  Company Number: US-GILEAD-2010-0029894

PATIENT
  Age: 26 Year
  Sex: Female
  Weight: 72.57 kg

DRUGS (11)
  1. LETAIRIS [Suspect]
     Indication: PULMONARY ARTERIAL HYPERTENSION
     Route: 048
     Dates: start: 20100130
  2. AMITRIPTYLINE [Concomitant]
  3. LASIX [Concomitant]
  4. LEVETIRACETAM [Concomitant]
  5. REVATIO [Concomitant]
  6. FERROUS SULFATE [Concomitant]
  7. TOPIRAMATE [Concomitant]
  8. AMIODARONE [Concomitant]
  9. MIDORINE [Concomitant]
  10. DIGOXIN [Concomitant]
  11. DOCQLACE [Concomitant]

REACTIONS (1)
  - Epistaxis [Unknown]
